FAERS Safety Report 5519032-5 (Version None)
Quarter: 2007Q4

REPORT INFORMATION
  Report Type: 
  Country: None (occurrence: None)
  Receive Date: 20071116
  Receipt Date: 20071113
  Transmission Date: 20080405
  Serious: Yes (Other)
  Sender: FDA-Public Use
  Company Number: PHEH2007US14322

PATIENT
  Sex: Female

DRUGS (3)
  1. DIOVAN [Suspect]
     Dosage: ^180MG, UNK
     Dates: start: 20071001
  2. DIOVAN [Suspect]
     Dosage: 360 MG, UNK
     Dates: start: 20071001
  3. INFLUENZA VACCINE [Suspect]
     Dosage: UNK, ONCE/SINGLE
     Dates: end: 20071001

REACTIONS (8)
  - BACK PAIN [None]
  - BLOOD GLUCOSE DECREASED [None]
  - DIZZINESS [None]
  - HEART RATE INCREASED [None]
  - HYPERTENSION [None]
  - MALAISE [None]
  - NAUSEA [None]
  - VOMITING [None]
